FAERS Safety Report 10511091 (Version 1)
Quarter: 2014Q4

REPORT INFORMATION
  Report Type: Spontaneous
  Country: DE (occurrence: None)
  Receive Date: 20141008
  Receipt Date: 20141008
  Transmission Date: 20150528
  Serious: Yes (Life-Threatening, Hospitalization)
  Sender: FDA-Public Use
  Company Number: 2014100007

PATIENT
  Age: 21 Year
  Sex: Female

DRUGS (7)
  1. AMITRIPTYLINE (AMITRIPTYLINE) [Suspect]
     Active Substance: AMITRIPTYLINE
  2. TORASEMIDE (TORASEMIDE) [Suspect]
     Active Substance: TORSEMIDE
  3. CARVEDILOL (CARVEDILOL) [Suspect]
     Active Substance: CARVEDILOL
  4. NICOTINIC ACID (NICOTINIC ACID) [Suspect]
     Active Substance: NIACIN
  5. GABAPENTIN (GABAPENTIN) [Suspect]
     Active Substance: GABAPENTIN
  6. AMLODIPINE [Suspect]
     Active Substance: AMLODIPINE BESYLATE
     Route: 048
  7. KETOPROFEN (KETOPROFEN) [Suspect]
     Active Substance: KETOPROFEN

REACTIONS (8)
  - Bradycardia [None]
  - Intentional overdose [None]
  - Pulse absent [None]
  - Cardiac disorder [None]
  - Cardiac arrest [None]
  - Loss of consciousness [None]
  - Sinoatrial block [None]
  - Akinesia [None]
